APPROVED DRUG PRODUCT: AMMONIA N 13
Active Ingredient: AMMONIA N-13
Strength: 3.75-260mCi/ML
Dosage Form/Route: INJECTABLE;INTRAVENOUS
Application: A204539 | Product #001
Applicant: CENTRAL RADIOPHARMACEUTICAL SERVICES INC
Approved: Jun 23, 2015 | RLD: No | RS: No | Type: DISCN